FAERS Safety Report 6177497-2 (Version None)
Quarter: 2009Q2

REPORT INFORMATION
  Report Type: 
  Country: None (occurrence: None)
  Receive Date: 20090504
  Receipt Date: 20090421
  Transmission Date: 20091009
  Serious: Yes (Hospitalization)
  Sender: FDA-Public Use
  Company Number: PHHO2009AU05300

PATIENT
  Sex: Male
  Weight: 83.5 kg

DRUGS (5)
  1. ZOLEDRONIC ACID [Suspect]
     Indication: NEOPLASM
     Dosage: 4 MG, EVERY 21 DAYS
     Route: 042
     Dates: start: 20090319, end: 20090413
  2. RAD 666 RAD+TAB [Suspect]
     Indication: NEOPLASM
     Dosage: UNK
     Route: 048
     Dates: start: 20090319
  3. RAD 666 RAD+TAB [Suspect]
     Dosage: 5 MG DAILY FOR 5 DAYS WITH 2 DAYS OFF
     Route: 048
     Dates: start: 20090409, end: 20090413
  4. LESCOL LES+TAB [Suspect]
     Indication: NEOPLASM
     Dosage: 80 MG DAILY
     Route: 048
     Dates: start: 20090319, end: 20090413
  5. MAXOLON [Concomitant]

REACTIONS (5)
  - DECREASED APPETITE [None]
  - DIARRHOEA [None]
  - DYSPNOEA [None]
  - HEPATIC ENZYME INCREASED [None]
  - NAUSEA [None]
